FAERS Safety Report 10688344 (Version 1)
Quarter: 2015Q1

REPORT INFORMATION
  Report Type: Spontaneous
  Country: FR (occurrence: FR)
  Receive Date: 20150102
  Receipt Date: 20150102
  Transmission Date: 20150720
  Serious: Yes (Hospitalization)
  Sender: FDA-Public Use
  Company Number: FR-PFIZER INC-2014359921

PATIENT
  Age: 84 Year
  Sex: Male

DRUGS (15)
  1. FLAGYL [Concomitant]
     Active Substance: METRONIDAZOLE\METRONIDAZOLE HYDROCHLORIDE
     Indication: BRONCHOPNEUMONIA
     Dosage: 500 MG, 3X/DAY
     Dates: start: 20141114, end: 20141119
  2. LIPANTHYL [Concomitant]
     Active Substance: FENOFIBRATE
     Dosage: 145 MG, 1X/DAY
     Route: 048
  3. ULTRALEVURE [Concomitant]
     Active Substance: SACCHAROMYCES CEREVISIAE
     Dosage: 200 MG, 3X/DAY
     Dates: start: 20141114, end: 20141119
  4. INFLUVAC [Concomitant]
     Active Substance: INFLUENZA VIRUS VACCINE
     Dosage: UNK, SINGLE
     Dates: start: 20141113, end: 20141113
  5. ZYVOXID [Suspect]
     Active Substance: LINEZOLID
     Dosage: 600 MG, 2X/DAY
     Route: 048
     Dates: start: 20141122, end: 20141129
  6. ADVIL [Concomitant]
     Active Substance: IBUPROFEN
     Dosage: 400 MG, 3X/DAY
     Route: 048
     Dates: start: 20141113
  7. VOLTARENE [Concomitant]
     Active Substance: DICLOFENAC SODIUM
     Dosage: 1 DF, 3X/DAY
     Route: 048
     Dates: start: 20141114
  8. TAZOCILLINE [Concomitant]
     Active Substance: PIPERACILLIN SODIUM\TAZOBACTAM SODIUM
     Dosage: UNK
     Route: 048
     Dates: start: 20141119, end: 20141122
  9. DOLIPRANE [Concomitant]
     Active Substance: ACETAMINOPHEN
     Dosage: 1 G, 3X/DAY
  10. ROCEPHINE [Concomitant]
     Active Substance: CEFTRIAXONE SODIUM
     Indication: BRONCHOPNEUMONIA
     Dosage: 1 G, DAILY
     Route: 042
     Dates: start: 20141114, end: 20141119
  11. TRIFLUCAN [Suspect]
     Active Substance: FLUCONAZOLE
     Dosage: UNK
     Route: 048
     Dates: start: 20141119, end: 20141122
  12. AMIKLIN [Concomitant]
     Active Substance: AMIKACIN SULFATE
     Dosage: UNK
     Route: 048
     Dates: start: 20141119, end: 20141122
  13. LECTIL [Concomitant]
     Active Substance: BETAHISTINE HYDROCHLORIDE
     Dosage: 16 MG, 2X/DAY
     Route: 048
     Dates: start: 20140922
  14. AUGMENTIN [Concomitant]
     Active Substance: AMOXICILLIN\CLAVULANATE POTASSIUM
     Indication: BRONCHOPNEUMONIA
     Dosage: 2 DF, 3X/DAY
     Dates: start: 20141103, end: 20141109
  15. KETODERM [Concomitant]
     Active Substance: KETOCONAZOLE
     Dosage: UNK, 3X/DAY
     Dates: start: 20141114, end: 20141119

REACTIONS (3)
  - Leukopenia [Unknown]
  - Anaemia [Unknown]
  - Thrombocytopenia [Unknown]

NARRATIVE: CASE EVENT DATE: 20141123
